FAERS Safety Report 9819229 (Version 3)
Quarter: 2014Q1

REPORT INFORMATION
  Report Type: Spontaneous
  Country: FR (occurrence: FR)
  Receive Date: 20140115
  Receipt Date: 20140304
  Transmission Date: 20141002
  Serious: Yes (Death, Hospitalization, Other)
  Sender: FDA-Public Use
  Company Number: FR-BAYER-2014-005072

PATIENT
  Age: 64 Year
  Sex: Male

DRUGS (6)
  1. NEXAVAR [Suspect]
     Indication: HEPATOCELLULAR CARCINOMA
     Dosage: 200 MG, BID
     Route: 048
     Dates: start: 201304, end: 20131220
  2. ETIOVEN [Suspect]
  3. METFORMINE [Concomitant]
     Dosage: 850 MG, QD
  4. PRAVASTATIN SODIUM [Concomitant]
     Dosage: 40 MG, QD
  5. LASILIX [Concomitant]
     Indication: HEART RATE INCREASED
  6. CORDARONE [Concomitant]
     Indication: HEART RATE INCREASED

REACTIONS (5)
  - Sepsis [Recovered/Resolved]
  - Pancytopenia [Fatal]
  - Cough [Unknown]
  - Pyrexia [Unknown]
  - Folliculitis [None]
